FAERS Safety Report 5895388-9 (Version None)
Quarter: 2008Q3

REPORT INFORMATION
  Report Type: 
  Country: None (occurrence: None)
  Receive Date: 20080923
  Receipt Date: 20080923
  Transmission Date: 20090109
  Serious: Yes (Other)
  Sender: FDA-Public Use
  Company Number: None

PATIENT
  Age: 47 Year
  Sex: Male
  Weight: 113.3993 kg

DRUGS (1)
  1. MICARDIS [Suspect]
     Dosage: 20 MG DAILY PO
     Route: 048
     Dates: start: 20060501, end: 20080829

REACTIONS (8)
  - ARTHRALGIA [None]
  - ASTHENIA [None]
  - BACK PAIN [None]
  - DISTURBANCE IN ATTENTION [None]
  - DRUG INTOLERANCE [None]
  - MEMORY IMPAIRMENT [None]
  - MUSCULOSKELETAL STIFFNESS [None]
  - PAIN [None]
